FAERS Safety Report 7860028-6 (Version None)
Quarter: 2011Q4

REPORT INFORMATION
  Report Type: 
  Country: None (occurrence: None)
  Receive Date: 20111025
  Receipt Date: 20111012
  Transmission Date: 20120403
  Serious: Yes (Death, Hospitalization, Other)
  Sender: FDA-Public Use
  Company Number: 2009179794

PATIENT
  Age: 80 Year
  Sex: Male

DRUGS (16)
  1. FRAGMIN [Suspect]
     Indication: ATRIAL FIBRILLATION
     Dosage: 7500 IU, 2X/DAY, SUBCUTANEOUS
     Route: 058
     Dates: start: 20081209, end: 20081222
  2. BUMETANIDE [Concomitant]
  3. WARFARIN SODIUM [Suspect]
     Indication: ATRIAL FIBRILLATION
     Dosage: AS PER SCHEDULE
     Dates: start: 20081220, end: 20081223
  4. CORDARONE [Suspect]
     Indication: ATRIAL FIBRILLATION
     Dosage: 300 MG, IV BOLUS
     Route: 040
     Dates: start: 20081211, end: 20081211
  5. AMARYL [Concomitant]
  6. CORDARONE [Suspect]
     Indication: ATRIAL FIBRILLATION
     Dosage: GRADUALLY REDUCED DOSES, ORAL
     Route: 048
     Dates: start: 20081215, end: 20081226
  7. ALLOPURINOL [Concomitant]
  8. CORDARONE [Suspect]
     Indication: ATRIAL FIBRILLATION
     Dosage: 1500 MG, INTRAVENOUS
     Route: 042
     Dates: start: 20081212, end: 20081214
  9. ARTHROTEC [Suspect]
     Dosage: ORAL
     Route: 048
     Dates: start: 20081224, end: 20081226
  10. METOPROLOL SUCCINATE [Concomitant]
  11. METFORMIN HCL [Concomitant]
  12. WARFARIN SODIUM [Suspect]
     Indication: ATRIAL FIBRILLATION
     Dosage: AS PER SCHEDULE, ORAL
     Route: 048
     Dates: start: 20081210, end: 20081213
  13. MONOKET OD (ISOSORBIDE MONONITRATE) [Concomitant]
  14. POTASSIUM CHLORIDE [Concomitant]
  15. PREDNISOLONE [Concomitant]
  16. APOCILLIN (PHENOXYMETHYLPENICILLIN POTASSIUM) [Concomitant]

REACTIONS (6)
  - MYOCARDIAL INFARCTION [None]
  - DRUG INTERACTION [None]
  - FALL [None]
  - MUSCLE HAEMORRHAGE [None]
  - HAEMORRHAGE SUBCUTANEOUS [None]
  - HAEMORRHAGIC ANAEMIA [None]
